FAERS Safety Report 11203974 (Version 2)
Quarter: 2015Q3

REPORT INFORMATION
  Report Type: Report from Study
  Country: US (occurrence: US)
  Receive Date: 20150619
  Receipt Date: 20150713
  Transmission Date: 20151125
  Serious: Yes (Hospitalization)
  Sender: FDA-Public Use
  Company Number: US-ACTELION-A-NJ2015-119574

PATIENT
  Age: 13 Month
  Sex: Female

DRUGS (11)
  1. OXYGEN. [Concomitant]
     Active Substance: OXYGEN
  2. FLOVENT [Concomitant]
     Active Substance: FLUTICASONE PROPIONATE
     Dosage: 220 MCG, BID
     Route: 055
  3. LANSOPRAZOLE. [Concomitant]
     Active Substance: LANSOPRAZOLE
     Dosage: 18 MG, UNK
  4. BACLOFEN. [Concomitant]
     Active Substance: BACLOFEN
     Dosage: UNK
     Dates: start: 20140820
  5. ATIVAN [Concomitant]
     Active Substance: LORAZEPAM
     Dosage: 0.6 MG, UNK
  6. CHLOROTHIAZIDE. [Concomitant]
     Active Substance: CHLOROTHIAZIDE
     Dosage: 100 MG, UNK
  7. GLYCERIN. [Concomitant]
     Active Substance: GLYCERIN
     Dosage: UNK, PRN
     Route: 054
  8. PROPRANOLOL [Concomitant]
     Active Substance: PROPRANOLOL\PROPRANOLOL HYDROCHLORIDE
     Dosage: 0.5 MG, TID
  9. LOVENOX [Concomitant]
     Active Substance: ENOXAPARIN SODIUM
  10. TRACLEER [Suspect]
     Active Substance: BOSENTAN
     Indication: PULMONARY HYPERTENSION
     Dosage: 6.25 MG, BID
     Route: 050
     Dates: start: 20141228
  11. SILDENAFIL. [Concomitant]
     Active Substance: SILDENAFIL
     Dosage: UNK
     Dates: end: 20150331

REACTIONS (5)
  - Pneumothorax [Unknown]
  - Dyspnoea [Recovered/Resolved]
  - Carbon dioxide abnormal [Unknown]
  - Acute respiratory failure [Recovered/Resolved]
  - Atelectasis [Recovered/Resolved]

NARRATIVE: CASE EVENT DATE: 20150610
